FAERS Safety Report 4474452-5 (Version None)
Quarter: 2004Q4

REPORT INFORMATION
  Report Type: 
  Country: None (occurrence: None)
  Receive Date: 20041012
  Receipt Date: 20040910
  Transmission Date: 20050328
  Serious: Yes (Hospitalization)
  Sender: FDA-Public Use
  Company Number: ZAWYE930927JUL04

PATIENT
  Age: 15 Year
  Sex: Female

DRUGS (3)
  1. EFFEXOR XR [Suspect]
  2. ALPRAZOLAM [Suspect]
     Indication: ANXIETY
     Dates: start: 20040710, end: 20040710
  3. DORMICUM (MIDAZOLAM MALEATE, , 0) [Suspect]
     Dosage: 15 TABLETS (15MG) OVERDOSE AMOUNT
     Dates: start: 20040710, end: 20040710

REACTIONS (7)
  - BLOOD PRESSURE SYSTOLIC DECREASED [None]
  - DEPRESSION [None]
  - IRRITABILITY [None]
  - MULTIPLE DRUG OVERDOSE INTENTIONAL [None]
  - RESTLESSNESS [None]
  - SOMNOLENCE [None]
  - SUICIDE ATTEMPT [None]
